FAERS Safety Report 4491243-X (Version None)
Quarter: 2004Q4

REPORT INFORMATION
  Report Type: 
  Country: None (occurrence: None)
  Receive Date: 20041101
  Receipt Date: 20041101
  Transmission Date: 20050328
  Serious: Yes (Hospitalization)
  Sender: FDA-Public Use
  Company Number: None

PATIENT
  Age: 73 Year
  Sex: Male
  Weight: 95.5 kg

DRUGS (15)
  1. NAFCILLIN [Suspect]
     Indication: OSTEOMYELITIS
     Dosage: 2 MG Q 4 HR IV
     Route: 042
  2. ATENOLOL [Concomitant]
  3. CLONIDINE HCL [Concomitant]
  4. CLOPIDOGREL [Concomitant]
  5. FUROSEMIDE [Concomitant]
  6. GABAPENTIN [Concomitant]
  7. HYDROCHLOROTHIAZIDE [Concomitant]
  8. LISINOPRIL [Concomitant]
  9. METFORMIN [Concomitant]
  10. M.V.I. [Concomitant]
  11. OMEPRAZOLE [Concomitant]
  12. KCL TAB [Concomitant]
  13. RIFAMPICIN [Concomitant]
  14. SIMVASTATIN [Concomitant]
  15. TERAZOSIN HCL [Concomitant]

REACTIONS (2)
  - DIARRHOEA [None]
  - RENAL FAILURE ACUTE [None]
